FAERS Safety Report 25039545 (Version 1)
Quarter: 2025Q1

REPORT INFORMATION
  Report Type: Spontaneous
  Country: US (occurrence: US)
  Receive Date: 20250305
  Receipt Date: 20250305
  Transmission Date: 20250408
  Serious: Yes (Other)
  Sender: ALEXION PHARMACEUTICALS
  Company Number: US-AstraZeneca-CH-00815701A

PATIENT
  Age: 81 Year
  Weight: 55.791 kg

DRUGS (1)
  1. DALIRESP [Suspect]
     Active Substance: ROFLUMILAST
     Indication: Chronic obstructive pulmonary disease
     Dosage: 500 MILLIGRAM, QD

REACTIONS (6)
  - Weight decreased [Unknown]
  - COVID-19 pneumonia [Unknown]
  - Depression [Unknown]
  - Diarrhoea [Unknown]
  - Insomnia [Unknown]
  - Tremor [Unknown]
